FAERS Safety Report 9648696 (Version 1)
Quarter: 2013Q4

REPORT INFORMATION
  Report Type: Spontaneous
  Country: US (occurrence: None)
  Receive Date: 20131025
  Receipt Date: 20131025
  Transmission Date: 20140711
  Serious: Yes (Other)
  Sender: FDA-Public Use
  Company Number: None

PATIENT
  Age: 40 None
  Sex: Female

DRUGS (3)
  1. RIZATRIPTAN BENZOATE [Suspect]
     Indication: MIGRAINE
     Dosage: 2 BY MOUTH
     Route: 048
     Dates: start: 20130929, end: 20130930
  2. VITAMIN D [Concomitant]
  3. ACYCLOVIR [Concomitant]

REACTIONS (4)
  - Malaise [None]
  - Pruritus [None]
  - Pruritus [None]
  - Pruritus [None]
